FAERS Safety Report 8733799 (Version 5)
Quarter: 2013Q2

REPORT INFORMATION
  Report Type: Spontaneous
  Country: JP (occurrence: JP)
  Receive Date: 20120821
  Receipt Date: 20130408
  Transmission Date: 20140414
  Serious: Yes (Death)
  Sender: FDA-Public Use
  Company Number: JP-BAYER-2012-082764

PATIENT
  Age: 63 Year
  Sex: Male
  Weight: 65 kg

DRUGS (4)
  1. NEXAVAR [Suspect]
     Indication: METASTATIC RENAL CELL CARCINOMA
     Dosage: DAILY DOSE 800 MG
     Route: 048
     Dates: start: 20120619, end: 20120622
  2. NEXAVAR [Suspect]
     Indication: METASTATIC RENAL CELL CARCINOMA
     Dosage: DAILY DOSE 400 MG
     Route: 048
     Dates: start: 20120623, end: 20120718
  3. AMLODIN [Concomitant]
     Indication: HYPERTENSION
     Dosage: DAILY DOSE 10 MG
     Route: 048
     Dates: start: 20120614
  4. OLMETEC [Concomitant]
     Indication: HYPERTENSION
     Dosage: DAILY DOSE 30 MG
     Route: 048
     Dates: start: 20120622

REACTIONS (11)
  - Acute hepatic failure [Fatal]
  - Pneumonia legionella [Fatal]
  - Pyrexia [Fatal]
  - Respiratory disorder [Fatal]
  - Cellulitis [Fatal]
  - Feeling hot [Fatal]
  - Erythema [Fatal]
  - Oedema peripheral [Fatal]
  - Disseminated intravascular coagulation [Fatal]
  - Platelet count decreased [Fatal]
  - Hepatorenal failure [Fatal]
